FAERS Safety Report 10161921 (Version 1)
Quarter: 2014Q2

REPORT INFORMATION
  Report Type: Spontaneous
  Country: IT (occurrence: IT)
  Receive Date: 20140509
  Receipt Date: 20140509
  Transmission Date: 20141212
  Serious: Yes (Hospitalization)
  Sender: FDA-Public Use
  Company Number: IT-BAYER-2014-066778

PATIENT
  Age: 83 Year
  Sex: Female
  Weight: 70 kg

DRUGS (8)
  1. CARDIOASPIRIN [Suspect]
     Indication: PROPHYLAXIS
     Dosage: DAILY DOSE 1 DF
     Route: 048
     Dates: start: 20100101, end: 20140331
  2. OMEPRAZOLE [Concomitant]
     Dosage: DAILY DOSE 20 MG
     Route: 048
  3. RAMIPRIL [Concomitant]
     Dosage: DAILY DOSE 5 MG
     Route: 048
  4. AMIODARONE [Concomitant]
     Dosage: DAILY DOSE 100 MG
     Route: 048
  5. LERCANIDIPINE [Concomitant]
     Dosage: DAILY DOSE 10 MG
     Route: 048
  6. LORAZEPAM [Concomitant]
     Dosage: DAILY DOSE 1 MG
     Route: 048
  7. ISOSORBIDE MONONITRATE [Concomitant]
     Dosage: DAILY DOSE 60 MG
     Route: 048
  8. BEZAFIBRATE [Concomitant]
     Dosage: DAILY DOSE 400 MG
     Route: 048

REACTIONS (3)
  - Haemorrhagic stroke [Recovering/Resolving]
  - Headache [Recovering/Resolving]
  - Hemiparesis [Recovering/Resolving]
